FAERS Safety Report 9176099 (Version 2)
Quarter: 2013Q1

REPORT INFORMATION
  Report Type: Spontaneous
  Country: CA (occurrence: CA)
  Receive Date: 20130321
  Receipt Date: 20130329
  Transmission Date: 20140127
  Serious: Yes (Hospitalization)
  Sender: FDA-Public Use
  Company Number: CA-AMGEN-CANSP2013018447

PATIENT
  Age: 73 Year
  Sex: Male

DRUGS (7)
  1. ENBREL [Suspect]
     Indication: RHEUMATOID ARTHRITIS
     Dosage: UNK
     Dates: start: 20030701
  2. BISOPROLOL [Concomitant]
     Dosage: UNK
  3. ATORVASTATIN [Concomitant]
     Dosage: UNK
  4. PLAVIX [Concomitant]
     Dosage: UNK
  5. MIRTAZAPINE [Concomitant]
     Dosage: UNK
  6. FOLIC ACID [Concomitant]
     Dosage: UNK
  7. VITAMIN D /00107901/ [Concomitant]
     Dosage: UNK

REACTIONS (2)
  - Cardiac disorder [Recovered/Resolved]
  - Transient ischaemic attack [Recovered/Resolved]
